FAERS Safety Report 17345026 (Version 1)
Quarter: 2020Q1

REPORT INFORMATION
  Report Type: Spontaneous
  Country: US (occurrence: US)
  Receive Date: 20200129
  Receipt Date: 20200129
  Transmission Date: 20200409
  Serious: Yes (Other)
  Sender: FDA-Public Use
  Company Number: US-BAYER-2020-015779

PATIENT
  Sex: Female

DRUGS (3)
  1. MIRALAX [Suspect]
     Active Substance: POLYETHYLENE GLYCOL 3350
     Indication: IRRITABLE BOWEL SYNDROME
     Dosage: 2 DF, QD
     Route: 048
     Dates: start: 2010
  2. ANASTROZOLE. [Concomitant]
     Active Substance: ANASTROZOLE
  3. MIRALAX [Suspect]
     Active Substance: POLYETHYLENE GLYCOL 3350
     Indication: IRRITABLE BOWEL SYNDROME
     Dosage: 1 DF, QD
     Route: 048
     Dates: start: 2010

REACTIONS (6)
  - Off label use [Unknown]
  - Inappropriate schedule of product administration [None]
  - Urine odour abnormal [Unknown]
  - Breast cancer [None]
  - Product use in unapproved indication [Unknown]
  - Incorrect dose administered [None]

NARRATIVE: CASE EVENT DATE: 2012
